FAERS Safety Report 9246075 (Version 8)
Quarter: 2013Q4

REPORT INFORMATION
  Report Type: Report from Study
  Country: CA (occurrence: CA)
  Receive Date: 20130422
  Receipt Date: 20131230
  Transmission Date: 20140711
  Serious: Yes (Death, Other)
  Sender: FDA-Public Use
  Company Number: CA-ROCHE-1216146

PATIENT
  Age: 42 Year
  Sex: Male
  Weight: 68 kg

DRUGS (12)
  1. AVASTIN [Suspect]
     Indication: GLIOBLASTOMA
     Route: 042
     Dates: start: 20130109
  2. AVASTIN [Suspect]
     Route: 042
     Dates: start: 20130307
  3. AVASTIN [Suspect]
     Route: 042
     Dates: start: 20130313
  4. AVASTIN [Suspect]
     Route: 042
     Dates: start: 20130905
  5. AVASTIN [Suspect]
     Route: 042
     Dates: start: 20131017
  6. AVASTIN [Suspect]
     Route: 065
     Dates: start: 20131220
  7. DECADRON [Concomitant]
  8. DILANTIN [Concomitant]
  9. ZANTAC [Concomitant]
  10. KEPPRA [Concomitant]
     Route: 065
     Dates: start: 20131127
  11. ETOPOSIDE [Concomitant]
     Route: 065
     Dates: start: 20131127
  12. VP-16 [Concomitant]

REACTIONS (8)
  - Cerebral haemorrhage [Fatal]
  - Balance disorder [Unknown]
  - Clavicle fracture [Unknown]
  - Muscular weakness [Not Recovered/Not Resolved]
  - Fall [Unknown]
  - Weight decreased [Not Recovered/Not Resolved]
  - Blood test abnormal [Not Recovered/Not Resolved]
  - Neoplasm [Not Recovered/Not Resolved]
